FAERS Safety Report 13995755 (Version 2)
Quarter: 2017Q4

REPORT INFORMATION
  Report Type: Report from Study
  Country: None (occurrence: US)
  Receive Date: 20170921
  Receipt Date: 20171006
  Transmission Date: 20180321
  Serious: No
  Sender: FDA-Public Use
  Company Number: US-ABBVIE-17K-163-2103747-00

PATIENT
  Age: 41 Year
  Sex: Male
  Weight: 97.61 kg

DRUGS (5)
  1. NAPROXEN. [Concomitant]
     Active Substance: NAPROXEN
     Indication: PAIN
  2. OMEPRAZOLE. [Concomitant]
     Active Substance: OMEPRAZOLE
     Indication: DYSPEPSIA
  3. ADVIL [Concomitant]
     Active Substance: IBUPROFEN
     Indication: HEADACHE
  4. HUMIRA [Suspect]
     Active Substance: ADALIMUMAB
     Indication: RHEUMATOID ARTHRITIS
     Route: 058
     Dates: start: 2016
  5. OMEPRAZOLE. [Concomitant]
     Active Substance: OMEPRAZOLE
     Indication: FLATULENCE

REACTIONS (16)
  - Paraesthesia [Unknown]
  - Limb discomfort [Recovered/Resolved]
  - Musculoskeletal discomfort [Recovered/Resolved]
  - Ocular discomfort [Recovered/Resolved]
  - Carbon dioxide decreased [Recovered/Resolved]
  - Hyperventilation [Recovered/Resolved]
  - Panic attack [Unknown]
  - Anxiety [Recovered/Resolved]
  - Flushing [Unknown]
  - Abdominal discomfort [Recovered/Resolved]
  - Chest pain [Recovered/Resolved]
  - Blood potassium decreased [Recovered/Resolved]
  - Palpitations [Recovered/Resolved]
  - Pain in extremity [Recovered/Resolved]
  - Hypoaesthesia [Recovered/Resolved]
  - Sensory disturbance [Recovered/Resolved]

NARRATIVE: CASE EVENT DATE: 201612
